FAERS Safety Report 9293352 (Version 2)
Quarter: 2013Q3

REPORT INFORMATION
  Report Type: Spontaneous
  Country: CH (occurrence: CH)
  Receive Date: 20130516
  Receipt Date: 20130807
  Transmission Date: 20140515
  Serious: Yes (Other)
  Sender: FDA-Public Use
  Company Number: PHHY2013CH044750

PATIENT
  Sex: Female

DRUGS (6)
  1. FEMARA [Suspect]
     Indication: BREAST CANCER METASTATIC
     Dosage: UNK 1X1 TABLET PER DAY
     Dates: start: 20090520
  2. TRASTUZUMAB [Concomitant]
     Dosage: UNK
     Dates: start: 20090520
  3. CALCIMAGON [Concomitant]
     Dosage: UNK UKN, UNK
     Dates: start: 201111
  4. DENOSUMAB [Concomitant]
     Dosage: UNK UKN, UNK
     Dates: start: 201211
  5. FELODIPIN [Concomitant]
     Dosage: UNK UKN, UNK
  6. HYGROTON [Concomitant]

REACTIONS (9)
  - Chronic myeloid leukaemia [Recovered/Resolved]
  - Second primary malignancy [Recovered/Resolved]
  - Adenoma benign [Unknown]
  - Metastases to bone [Unknown]
  - Renal cancer [Unknown]
  - Leukocytosis [Recovered/Resolved]
  - Hypokalaemia [Unknown]
  - Hypertension [Unknown]
  - Thrombosis [Unknown]
